FAERS Safety Report 6913848-6 (Version None)
Quarter: 2010Q3

REPORT INFORMATION
  Report Type: 
  Country: None (occurrence: None)
  Receive Date: 20100809
  Receipt Date: 20100728
  Transmission Date: 20110219
  Serious: Yes (Hospitalization)
  Sender: FDA-Public Use
  Company Number: FR-ROCHE-718160

PATIENT
  Sex: Male
  Weight: 45 kg

DRUGS (4)
  1. CAPECITABINE [Suspect]
     Indication: ENDOCRINE NEOPLASM
     Route: 048
     Dates: start: 20090922, end: 20100707
  2. CAPECITABINE [Suspect]
     Dosage: DOSE REDUCED. LAST  DOSE PRIOR TO SAE: 29 JUNE 2010.
     Route: 048
     Dates: start: 20100728
  3. BEVACIZUMAB [Suspect]
     Indication: ENDOCRINE NEOPLASM
     Route: 042
     Dates: start: 20090922, end: 20100707
  4. BEVACIZUMAB [Suspect]
     Dosage: LAST DOSE PRIOR TO SAE: 29 JUNE 2010.
     Route: 042
     Dates: start: 20100728

REACTIONS (5)
  - DECREASED APPETITE [None]
  - DYSPHAGIA [None]
  - GENERAL PHYSICAL HEALTH DETERIORATION [None]
  - LUNG NEOPLASM [None]
  - LYMPHADENOPATHY [None]
